FAERS Safety Report 18367010 (Version 3)
Quarter: 2022Q2

REPORT INFORMATION
  Report Type: Spontaneous
  Country: US (occurrence: None)
  Receive Date: 20201009
  Receipt Date: 20220521
  Transmission Date: 20220721
  Serious: Yes (Hospitalization, Other)
  Sender: FDA-Public Use
  Company Number: 2020SF27970

PATIENT
  Age: 21690 Day
  Sex: Male
  Weight: 88.5 kg

DRUGS (75)
  1. FARXIGA [Suspect]
     Active Substance: DAPAGLIFLOZIN PROPANEDIOL
     Indication: Type 2 diabetes mellitus
     Route: 048
     Dates: start: 20140919, end: 201708
  2. FARXIGA [Suspect]
     Active Substance: DAPAGLIFLOZIN PROPANEDIOL
     Indication: Weight decreased
     Route: 048
     Dates: start: 20140919, end: 201708
  3. FARXIGA [Suspect]
     Active Substance: DAPAGLIFLOZIN PROPANEDIOL
     Indication: Blood pressure decreased
     Route: 048
     Dates: start: 20140919, end: 201708
  4. FARXIGA [Suspect]
     Active Substance: DAPAGLIFLOZIN PROPANEDIOL
     Indication: Type 2 diabetes mellitus
     Route: 048
     Dates: start: 20161219
  5. FARXIGA [Suspect]
     Active Substance: DAPAGLIFLOZIN PROPANEDIOL
     Indication: Weight decreased
     Route: 048
     Dates: start: 20161219
  6. FARXIGA [Suspect]
     Active Substance: DAPAGLIFLOZIN PROPANEDIOL
     Indication: Blood pressure decreased
     Route: 048
     Dates: start: 20161219
  7. FARXIGA [Suspect]
     Active Substance: DAPAGLIFLOZIN PROPANEDIOL
     Indication: Type 2 diabetes mellitus
     Route: 048
     Dates: start: 20170426
  8. FARXIGA [Suspect]
     Active Substance: DAPAGLIFLOZIN PROPANEDIOL
     Indication: Weight decreased
     Route: 048
     Dates: start: 20170426
  9. FARXIGA [Suspect]
     Active Substance: DAPAGLIFLOZIN PROPANEDIOL
     Indication: Blood pressure decreased
     Route: 048
     Dates: start: 20170426
  10. FARXIGA [Suspect]
     Active Substance: DAPAGLIFLOZIN PROPANEDIOL
     Indication: Type 2 diabetes mellitus
     Route: 048
     Dates: start: 20150123
  11. FARXIGA [Suspect]
     Active Substance: DAPAGLIFLOZIN PROPANEDIOL
     Indication: Weight decreased
     Route: 048
     Dates: start: 20150123
  12. FARXIGA [Suspect]
     Active Substance: DAPAGLIFLOZIN PROPANEDIOL
     Indication: Blood pressure decreased
     Route: 048
     Dates: start: 20150123
  13. INSULIN GLARGINE [Concomitant]
     Active Substance: INSULIN GLARGINE
  14. GLIPIZIDE [Concomitant]
     Active Substance: GLIPIZIDE
  15. BYDUREON [Concomitant]
     Active Substance: EXENATIDE
  16. METOPROLOL SUCCINATE [Concomitant]
     Active Substance: METOPROLOL SUCCINATE
  17. LISINOPRIL [Concomitant]
     Active Substance: LISINOPRIL
  18. AMLODIPINE [Concomitant]
     Active Substance: AMLODIPINE BESYLATE
  19. HYDROCODONE [Concomitant]
     Active Substance: HYDROCODONE
  20. TEMAZEPAM [Concomitant]
     Active Substance: TEMAZEPAM
  21. ASPIRIN [Concomitant]
     Active Substance: ASPIRIN
  22. CLOPIDOGREL BISULFATE [Concomitant]
     Active Substance: CLOPIDOGREL BISULFATE
  23. ACETAMINOPHEN\HYDROCODONE [Concomitant]
     Active Substance: ACETAMINOPHEN\HYDROCODONE
  24. VITAMINS [Concomitant]
     Active Substance: VITAMINS
  25. ATORVASTATIN [Concomitant]
     Active Substance: ATORVASTATIN
  26. NOVOLOG [Concomitant]
     Active Substance: INSULIN ASPART
  27. CATAPRES [Concomitant]
     Active Substance: CLONIDINE HYDROCHLORIDE
  28. KOMBIGLYZE XR [Concomitant]
     Active Substance: METFORMIN HYDROCHLORIDE\SAXAGLIPTIN HYDROCHLORIDE
  29. CIALIS [Concomitant]
     Active Substance: TADALAFIL
  30. METFORMIN [Concomitant]
     Active Substance: METFORMIN HYDROCHLORIDE
  31. FLEXERIL [Concomitant]
     Active Substance: CYCLOBENZAPRINE HYDROCHLORIDE
  32. FUROSEMIDE [Concomitant]
     Active Substance: FUROSEMIDE
  33. LEXAPRO [Concomitant]
     Active Substance: ESCITALOPRAM OXALATE
  34. ACTOS [Concomitant]
     Active Substance: PIOGLITAZONE HYDROCHLORIDE
  35. PROZAC [Concomitant]
     Active Substance: FLUOXETINE HYDROCHLORIDE
  36. EFFEXOR [Concomitant]
     Active Substance: VENLAFAXINE HYDROCHLORIDE
  37. CRESTOR [Concomitant]
     Active Substance: ROSUVASTATIN CALCIUM
  38. VIAGRA [Concomitant]
     Active Substance: SILDENAFIL CITRATE
  39. SIMVASTATIN [Concomitant]
     Active Substance: SIMVASTATIN
  40. MOVANTIK [Concomitant]
     Active Substance: NALOXEGOL OXALATE
  41. VENLAFAXINE [Concomitant]
     Active Substance: VENLAFAXINE HYDROCHLORIDE
  42. TANZEUM [Concomitant]
     Active Substance: ALBIGLUTIDE
  43. NITROGLYCERIN [Concomitant]
     Active Substance: NITROGLYCERIN
  44. ACETAMINOPHEN [Concomitant]
     Active Substance: ACETAMINOPHEN
  45. VITAMIN D [Concomitant]
     Active Substance: VITAMIN D NOS
  46. TOPAMIDOL [Concomitant]
  47. MORPHINE SULFATE [Concomitant]
     Active Substance: MORPHINE SULFATE
  48. SODIUM CHLORIDE [Concomitant]
     Active Substance: SODIUM CHLORIDE
  49. DEXTROSE [Concomitant]
     Active Substance: DEXTROSE
  50. FAMOTIDINE [Concomitant]
     Active Substance: FAMOTIDINE
  51. ONDANSETRON [Concomitant]
     Active Substance: ONDANSETRON
  52. DIFICID [Concomitant]
     Active Substance: FIDAXOMICIN
  53. PHOSPHORUS [Concomitant]
     Active Substance: PHOSPHORUS
  54. MUPIROCIN [Concomitant]
     Active Substance: MUPIROCIN
  55. DULOXETINE [Concomitant]
     Active Substance: DULOXETINE
  56. MAGNESIUM OXIDE [Concomitant]
     Active Substance: MAGNESIUM OXIDE
  57. ADVIL [Concomitant]
     Active Substance: IBUPROFEN
  58. AUGMENTIN [Concomitant]
     Active Substance: AMOXICILLIN\CLAVULANATE POTASSIUM
  59. RESTORIL [Concomitant]
     Active Substance: TEMAZEPAM
  60. LEVEMIR [Concomitant]
     Active Substance: INSULIN DETEMIR
  61. TOUJEO [Concomitant]
     Active Substance: INSULIN GLARGINE
  62. CLOTRIMAZOLE [Concomitant]
     Active Substance: CLOTRIMAZOLE
  63. SERTRALINE [Concomitant]
     Active Substance: SERTRALINE HYDROCHLORIDE
  64. PROPOFOL [Concomitant]
     Active Substance: PROPOFOL
  65. PROPOFOL [Concomitant]
     Active Substance: PROPOFOL
  66. ZOFRAN [Concomitant]
     Active Substance: ONDANSETRON HYDROCHLORIDE
  67. CLINDAMYCIN [Concomitant]
     Active Substance: CLINDAMYCIN
  68. MARCAINE [Concomitant]
     Active Substance: BUPIVACAINE HYDROCHLORIDE
  69. XYLO [Concomitant]
  70. BASAGLAR [Concomitant]
     Active Substance: INSULIN GLARGINE
  71. TRULICITY [Concomitant]
     Active Substance: DULAGLUTIDE
  72. CEFUROXIME [Concomitant]
     Active Substance: CEFUROXIME
  73. BACLOFEN [Concomitant]
     Active Substance: BACLOFEN
  74. METRONIDAZOLE [Concomitant]
     Active Substance: METRONIDAZOLE
  75. BYDUREON [Concomitant]
     Active Substance: EXENATIDE

REACTIONS (12)
  - Fournier^s gangrene [Unknown]
  - Necrotising fasciitis [Unknown]
  - Scrotal abscess [Unknown]
  - Acute kidney injury [Unknown]
  - Chronic kidney disease [Unknown]
  - Renal failure [Unknown]
  - Perineal abscess [Unknown]
  - Perineal cellulitis [Unknown]
  - End stage renal disease [Unknown]
  - Peritonitis [Unknown]
  - Hyperparathyroidism secondary [Unknown]
  - Sepsis [Unknown]

NARRATIVE: CASE EVENT DATE: 20150624
